FAERS Safety Report 13173139 (Version 2)
Quarter: 2017Q1

REPORT INFORMATION
  Report Type: Spontaneous
  Country: US (occurrence: US)
  Receive Date: 20170131
  Receipt Date: 20170221
  Transmission Date: 20170428
  Serious: Yes (Hospitalization)
  Sender: FDA-Public Use
  Company Number: US-IMPAX LABORATORIES, INC-2017-IPXL-00166

PATIENT
  Age: 34 Year
  Sex: Male

DRUGS (5)
  1. CARISOPRODOL. [Suspect]
     Active Substance: CARISOPRODOL
     Dosage: NOT MORE THAN 10 TABLETS, AT TIME
     Route: 048
  2. CARISOPRODOL. [Suspect]
     Active Substance: CARISOPRODOL
     Dosage: 15 TABLETS AT ONCE, 7.5 G
     Route: 048
  3. CARISOPRODOL. [Suspect]
     Active Substance: CARISOPRODOL
     Indication: DRUG ABUSE
     Dosage: 10 TO 30 TABLETS (5 TO 15 G), DAILY
     Route: 048
  4. CARISOPRODOL. [Suspect]
     Active Substance: CARISOPRODOL
     Dosage: 350 MG, EVERY 12HR
     Route: 048
  5. CARISOPRODOL. [Suspect]
     Active Substance: CARISOPRODOL
     Dosage: 350 MG, EVERY 6HR ON HOSPITAL DAY 5
     Route: 048

REACTIONS (12)
  - Paranoia [Recovering/Resolving]
  - Muscle twitching [Recovering/Resolving]
  - Respiratory distress [Recovering/Resolving]
  - Overdose [Unknown]
  - Delusion [Recovering/Resolving]
  - Hypoventilation [Recovering/Resolving]
  - Drug abuse [Unknown]
  - Agitation [Recovering/Resolving]
  - Unresponsive to stimuli [Recovering/Resolving]
  - Seizure like phenomena [Recovering/Resolving]
  - Drug withdrawal syndrome [Recovering/Resolving]
  - Vomiting [Recovering/Resolving]
